FAERS Safety Report 19657478 (Version 1)
Quarter: 2021Q3

REPORT INFORMATION
  Report Type: Spontaneous
  Country: AU (occurrence: AU)
  Receive Date: 20210804
  Receipt Date: 20210804
  Transmission Date: 20211014
  Serious: Yes (Other)
  Sender: FDA-Public Use
  Company Number: AU-ELI_LILLY_AND_COMPANY-AU202107004370

PATIENT
  Age: 71 Year
  Sex: Female

DRUGS (1)
  1. HUMULIN 70/30 [Suspect]
     Active Substance: INSULIN HUMAN
     Indication: DIABETES MELLITUS
     Dosage: UNK UNK, UNKNOWN
     Route: 065

REACTIONS (5)
  - Blood glucose increased [Unknown]
  - Visual impairment [Unknown]
  - Incorrect dose administered [Not Recovered/Not Resolved]
  - Spleen disorder [Unknown]
  - Pancreatic failure [Unknown]

NARRATIVE: CASE EVENT DATE: 20210707
